FAERS Safety Report 7213252-X (Version None)
Quarter: 2011Q1

REPORT INFORMATION
  Report Type: 
  Country: None (occurrence: None)
  Receive Date: 20110106
  Receipt Date: 20101228
  Transmission Date: 20110831
  Serious: Yes (Hospitalization)
  Sender: FDA-Public Use
  Company Number: US-JNJFOC-20101106260

PATIENT
  Sex: Female
  Weight: 72.58 kg

DRUGS (4)
  1. METHOTREXATE [Concomitant]
     Indication: RHEUMATOID ARTHRITIS
  2. ACETAMINOPHEN [Concomitant]
  3. SIMPONI [Suspect]
     Indication: RHEUMATOID ARTHRITIS
     Route: 058
  4. PREDNISONE [Concomitant]
     Indication: RHEUMATOID ARTHRITIS

REACTIONS (4)
  - SMALL INTESTINAL HAEMORRHAGE [None]
  - INTESTINAL MASS [None]
  - INTESTINAL PERFORATION [None]
  - GASTROINTESTINAL INFLAMMATION [None]
